FAERS Safety Report 13384393 (Version 1)
Quarter: 2017Q1

REPORT INFORMATION
  Report Type: Spontaneous
  Country: US (occurrence: US)
  Receive Date: 20170329
  Receipt Date: 20170329
  Transmission Date: 20170429
  Serious: Yes (Death)
  Sender: FDA-Public Use
  Company Number: None

PATIENT
  Age: 78 Year
  Sex: Male

DRUGS (1)
  1. ARANESP [Suspect]
     Active Substance: DARBEPOETIN ALFA
     Indication: THROMBOCYTOPENIA
     Route: 058
     Dates: start: 20170308, end: 20170315

REACTIONS (1)
  - Death [None]

NARRATIVE: CASE EVENT DATE: 20170315
